FAERS Safety Report 9393156 (Version 1)
Quarter: 2013Q3

REPORT INFORMATION
  Report Type: Spontaneous
  Country: CA (occurrence: CA)
  Receive Date: 20130710
  Receipt Date: 20130710
  Transmission Date: 20140515
  Serious: Yes (Hospitalization, Other)
  Sender: FDA-Public Use
  Company Number: CA-AMGEN-CANSP2013039299

PATIENT
  Age: 85 Year
  Sex: Female
  Weight: 48.64 kg

DRUGS (1)
  1. PROLIA [Suspect]
     Indication: OSTEOPOROSIS POSTMENOPAUSAL
     Dosage: UNK
     Dates: start: 20121122

REACTIONS (3)
  - Hip fracture [Recovering/Resolving]
  - Fall [Unknown]
  - Malaise [Not Recovered/Not Resolved]
